FAERS Safety Report 10821353 (Version 1)
Quarter: 2015Q1

REPORT INFORMATION
  Report Type: Spontaneous
  Country: US (occurrence: None)
  Receive Date: 20150213
  Receipt Date: 20150213
  Transmission Date: 20150721
  Serious: Yes (Other)
  Sender: FDA-Public Use
  Company Number: 201502046

PATIENT
  Age: 46 Year
  Sex: Male
  Weight: 102.06 kg

DRUGS (3)
  1. TESTIM [Suspect]
     Active Substance: TESTOSTERONE
     Indication: BLOOD TESTOSTERONE DECREASED
     Dosage: USED FEW TIMES AND DISCONTINUED
     Dates: start: 2005, end: 2005
  2. GENOTROPIN (SOMATROPIN) [Concomitant]
  3. FENOFIBRATE (FENOFIBRATE) [Concomitant]
     Active Substance: FENOFIBRATE

REACTIONS (5)
  - Growth hormone deficiency [None]
  - Nephropathy [None]
  - Fatigue [None]
  - Condition aggravated [None]
  - Asthenia [None]
